FAERS Safety Report 5673605-8 (Version None)
Quarter: 2008Q2

REPORT INFORMATION
  Report Type: 
  Country: None (occurrence: None)
  Receive Date: 20080225
  Receipt Date: 20070927
  Transmission Date: 20081010
  Serious: Yes (Hospitalization)
  Sender: FDA-Public Use
  Company Number: WAES 0709USA04623

PATIENT

DRUGS (1)
  1. ZOCOR [Suspect]
     Dosage: PO
     Route: 048
     Dates: end: 20070927

REACTIONS (1)
  - RHABDOMYOLYSIS [None]
